FAERS Safety Report 13003133 (Version 1)
Quarter: 2016Q4

REPORT INFORMATION
  Report Type: Spontaneous
  Country: US (occurrence: US)
  Receive Date: 20161205
  Receipt Date: 20161205
  Transmission Date: 20170207
  Serious: Yes (Hospitalization, Disabling, Other)
  Sender: FDA-Public Use
  Company Number: None

PATIENT
  Age: 56 Year
  Sex: Male
  Weight: 98.97 kg

DRUGS (6)
  1. GRALISE [Concomitant]
     Active Substance: GABAPENTIN
  2. MEDTRONIC PAIN PUMP WITH FENTANYL [Concomitant]
  3. GADOLINIUM [Suspect]
     Active Substance: GADOLINIUM
     Indication: NUCLEAR MAGNETIC RESONANCE IMAGING
     Dates: start: 20161118, end: 20161118
  4. LEVETIRACETAM. [Concomitant]
     Active Substance: LEVETIRACETAM
  5. LISINAPRIL [Concomitant]
  6. PERCOCET [Concomitant]
     Active Substance: ACETAMINOPHEN\OXYCODONE HYDROCHLORIDE

REACTIONS (2)
  - Encephalopathy [None]
  - Device infusion issue [None]

NARRATIVE: CASE EVENT DATE: 20161118
